FAERS Safety Report 21927709 (Version 11)
Quarter: 2025Q1

REPORT INFORMATION
  Report Type: Spontaneous
  Country: US (occurrence: US)
  Receive Date: 20230130
  Receipt Date: 20250328
  Transmission Date: 20250409
  Serious: No
  Sender: PFIZER
  Company Number: US-PFIZER INC-PV202300015383

PATIENT
  Age: 72 Year
  Sex: Male

DRUGS (3)
  1. BOSULIF [Suspect]
     Active Substance: BOSUTINIB MONOHYDRATE
     Indication: Philadelphia positive chronic myeloid leukaemia
     Dosage: 400 MG, 1X/DAY (A DAY)
  2. BOSULIF [Suspect]
     Active Substance: BOSUTINIB MONOHYDRATE
     Indication: Diarrhoea
     Dosage: 300 MG, 1X/DAY (TAKE 3 TABLETS (300 MG) BY MOUTH ONCE DAILY WITH FOOD)
     Route: 048
  3. VITAMINS NOS [Concomitant]
     Active Substance: VITAMINS

REACTIONS (3)
  - Laboratory test abnormal [Recovered/Resolved]
  - Oropharyngeal pain [Unknown]
  - Aphonia [Unknown]
